FAERS Safety Report 6077392-3 (Version None)
Quarter: 2009Q1

REPORT INFORMATION
  Report Type: 
  Country: None (occurrence: None)
  Receive Date: 20090213
  Receipt Date: 20090204
  Transmission Date: 20090719
  Serious: Yes (Hospitalization, Other)
  Sender: FDA-Public Use
  Company Number: GB-JNJFOC-20051203288

PATIENT
  Sex: Female
  Weight: 60 kg

DRUGS (13)
  1. REMICADE [Suspect]
     Indication: RHEUMATOID ARTHRITIS
     Route: 042
  2. DICLOFENAC [Concomitant]
  3. FERROUS SULPHATE [Concomitant]
  4. METHOTREXATE [Concomitant]
  5. NIFEDIPINE [Concomitant]
  6. SALBUTAMOL [Concomitant]
  7. SERETIDE [Concomitant]
  8. ACETAMINOPHEN W/ CODEINE [Concomitant]
     Route: 065
  9. AMOXICILLIN [Concomitant]
     Route: 065
  10. TRAMADOL [Concomitant]
     Route: 065
  11. CITALOPRAM HYDROBROMIDE [Concomitant]
     Route: 065
  12. LANSOPRAZOLE [Concomitant]
     Route: 065
  13. FOLIC ACID [Concomitant]

REACTIONS (2)
  - BRONCHIECTASIS [None]
  - LOWER RESPIRATORY TRACT INFECTION [None]
